FAERS Safety Report 5094651-1 (Version None)
Quarter: 2006Q3

REPORT INFORMATION
  Report Type: 
  Country: None (occurrence: None)
  Receive Date: 20060830
  Receipt Date: 20060823
  Transmission Date: 20061208
  Serious: Yes (Hospitalization)
  Sender: FDA-Public Use
  Company Number: E2020-00385-SPO-US

PATIENT
  Age: 81 Year
  Sex: Female

DRUGS (6)
  1. ARICEPT [Suspect]
     Indication: COGNITIVE DISORDER
     Dosage: SEE IMAGE
     Route: 048
     Dates: start: 20060701, end: 20060806
  2. ARICEPT [Suspect]
     Indication: COGNITIVE DISORDER
     Dosage: SEE IMAGE
     Route: 048
     Dates: start: 20060807, end: 20060807
  3. NABUMETONE [Concomitant]
  4. HYDROCHLOROTHIAZIDE [Concomitant]
  5. ANTIHYPERTENSIVE [Concomitant]
  6. MICARDIS [Concomitant]

REACTIONS (1)
  - COLITIS [None]
